FAERS Safety Report 4396304-1 (Version None)
Quarter: 2004Q3

REPORT INFORMATION
  Report Type: 
  Country: None (occurrence: None)
  Receive Date: 20040713
  Receipt Date: 20040712
  Transmission Date: 20050211
  Serious: Yes (Other)
  Sender: FDA-Public Use
  Company Number: US-GLAXOSMITHKLINE-A0517829A

PATIENT
  Sex: Female

DRUGS (4)
  1. ESKALITH [Suspect]
     Indication: BIPOLAR I DISORDER
     Dosage: 1CAP THREE TIMES PER DAY
     Route: 048
  2. LAMICTAL [Suspect]
     Indication: BIPOLAR DISORDER
     Dosage: 200MG PER DAY
     Route: 048
     Dates: start: 20031001
  3. LEXAPRO [Concomitant]
  4. ABILIFY [Concomitant]

REACTIONS (7)
  - ALOPECIA [None]
  - BLOOD GLUCOSE INCREASED [None]
  - DISTURBANCE IN ATTENTION [None]
  - HYPERGLYCAEMIA [None]
  - HYPERTHYROIDISM [None]
  - POLLAKIURIA [None]
  - WEIGHT INCREASED [None]
